FAERS Safety Report 8338386-8 (Version None)
Quarter: 2012Q1

REPORT INFORMATION
  Report Type: 
  Country: None (occurrence: None)
  Receive Date: 20120329
  Receipt Date: 20090506
  Transmission Date: 20120608
  Serious: Yes (Other)
  Sender: FDA-Public Use
  Company Number: PHEH2009US04325

PATIENT
  Age: 86 Year
  Sex: Female
  Weight: 69.9 kg

DRUGS (2)
  1. EXELON [Suspect]
     Indication: PARKINSON'S DISEASE
     Dosage: 4.6 MG, QD, TRANSDERMAL
     Route: 062
     Dates: start: 20090315, end: 20090401
  2. EXELON [Suspect]
     Indication: DEMENTIA
     Dosage: 4.6 MG, QD, TRANSDERMAL
     Route: 062
     Dates: start: 20090315, end: 20090401

REACTIONS (13)
  - FEELING JITTERY [None]
  - AGGRESSION [None]
  - AGITATION [None]
  - VOMITING [None]
  - RESTLESSNESS [None]
  - DEPRESSION [None]
  - CONFUSIONAL STATE [None]
  - INSOMNIA [None]
  - DYSSTASIA [None]
  - HALLUCINATION, VISUAL [None]
  - ASTHENIA [None]
  - ANXIETY [None]
  - NAUSEA [None]
